FAERS Safety Report 4861803-2 (Version None)
Quarter: 2005Q4

REPORT INFORMATION
  Report Type: 
  Country: None (occurrence: None)
  Receive Date: 20051130
  Receipt Date: 20050401
  Transmission Date: 20060501
  Serious: Yes (Other)
  Sender: FDA-Public Use
  Company Number: 2005054026

PATIENT
  Age: 91 Year
  Sex: Male
  Weight: 63.9572 kg

DRUGS (6)
  1. ZYVOX [Suspect]
     Indication: STAPHYLOCOCCAL INFECTION
     Dosage: 1200 MG (600 MG, BID)
     Dates: start: 20050316, end: 20050325
  2. POTASSIUM (POTASSIUM) [Concomitant]
  3. FUROSEMIDE [Concomitant]
  4. INSULIN [Concomitant]
  5. ASPIRIN [Concomitant]
  6. CYANOCOBALAMIN [Concomitant]

REACTIONS (1)
  - PLATELET COUNT DECREASED [None]
